FAERS Safety Report 5192361-3 (Version None)
Quarter: 2006Q4

REPORT INFORMATION
  Report Type: 
  Country: None (occurrence: None)
  Receive Date: 20061227
  Receipt Date: 20061215
  Transmission Date: 20070319
  Serious: Yes (Other)
  Sender: FDA-Public Use
  Company Number: TR-PFIZER INC-2006154396

PATIENT
  Age: 55 Year
  Sex: Male

DRUGS (2)
  1. SILDENAFIL CITRATE [Suspect]
  2. ALCOHOL [Concomitant]

REACTIONS (1)
  - HAEMOPTYSIS [None]
